FAERS Safety Report 24691235 (Version 1)
Quarter: 2024Q4

REPORT INFORMATION
  Report Type: Spontaneous
  Country: FR (occurrence: FR)
  Receive Date: 20241203
  Receipt Date: 20241203
  Transmission Date: 20250114
  Serious: Yes (Other)
  Sender: MYLAN
  Company Number: None

PATIENT
  Age: 79 Year
  Sex: Male
  Weight: 66 kg

DRUGS (14)
  1. ACYCLOVIR [Suspect]
     Active Substance: ACYCLOVIR
     Indication: Infected vasculitis
     Dosage: 700 MILLIGRAM, Q8H
     Route: 042
     Dates: start: 20240515, end: 20240529
  2. COLCHICINE [Suspect]
     Active Substance: COLCHICINE
     Indication: Gout
     Dosage: 0.5 MILLIGRAM, QD
     Route: 048
     Dates: start: 20240511, end: 20240516
  3. COLCHICINE [Suspect]
     Active Substance: COLCHICINE
     Dosage: 1 MILLIGRAM, QD
     Route: 048
     Dates: start: 20240517, end: 20240530
  4. COLCHICINE [Suspect]
     Active Substance: COLCHICINE
     Dosage: 1 MILLIGRAM, QD
     Route: 048
     Dates: start: 20240609
  5. KARDEGIC [Concomitant]
     Active Substance: ASPIRIN DL-LYSINE
     Indication: Ischaemic stroke
     Dosage: 160 MILLIGRAM, QD (POWDER FOR DRINKABLE SOLUTION IN SACHET)
     Route: 048
     Dates: start: 20240503
  6. PERINDOPRIL [Concomitant]
     Active Substance: PERINDOPRIL
     Indication: Hypertension
     Dosage: 4 MILLIGRAM, QD (SCORED TABLET)
     Route: 048
     Dates: start: 20240506
  7. GABAPENTIN [Concomitant]
     Active Substance: GABAPENTIN
     Indication: Post herpetic neuralgia
     Dosage: 300 MILLIGRAM, Q8H
     Route: 048
     Dates: start: 20240504
  8. LOVENOX [Concomitant]
     Active Substance: ENOXAPARIN SODIUM
     Indication: Thrombosis prophylaxis
     Dosage: 4000 INTERNATIONAL UNIT, QD (4000 UI ANTI-XA/0.4 ML, SOLUTION FOR INJECTION IN PRE-FILLED SYRINGE)
     Route: 058
     Dates: start: 20240503
  9. VALACYCLOVIR [Concomitant]
     Active Substance: VALACYCLOVIR HYDROCHLORIDE
     Indication: Herpes zoster
     Dosage: 1000 MILLIGRAM, Q8H
     Route: 048
     Dates: start: 20240504, end: 20240511
  10. ATORVASTATIN CALCIUM [Concomitant]
     Active Substance: ATORVASTATIN CALCIUM
     Indication: Cardiovascular event prophylaxis
     Dosage: 10 MILLIGRAM, QD
     Route: 048
     Dates: start: 20240503
  11. AMITRIPTYLINE HYDROCHLORIDE [Concomitant]
     Active Substance: AMITRIPTYLINE HYDROCHLORIDE
     Indication: Post herpetic neuralgia
     Dosage: 50 MILLIGRAM, QD
     Route: 048
     Dates: start: 20240505
  12. MELATONIN [Concomitant]
     Active Substance: MELATONIN
     Indication: Sleep disorder
     Dosage: 2 MILLIGRAM, QD (EXTENDED-RELEASE TABLET)
     Route: 048
     Dates: start: 20240513
  13. POLYETHYLENE GLYCOLS [Concomitant]
     Active Substance: POLYETHYLENE GLYCOLS
     Indication: Constipation
     Dosage: 1 DOSAGE FORM (POWDER FOR DRINKABLE SOLUTION IN SACHET)
     Route: 048
     Dates: start: 20240523, end: 20240623
  14. DOLIPRANE [Concomitant]
     Active Substance: ACETAMINOPHEN
     Indication: Post herpetic neuralgia
     Dosage: 500 MILLIGRAM
     Route: 048
     Dates: start: 20240503, end: 20240605

REACTIONS (1)
  - Acute kidney injury [Recovered/Resolved]

NARRATIVE: CASE EVENT DATE: 20240524
